FAERS Safety Report 18347930 (Version 3)
Quarter: 2020Q4

REPORT INFORMATION
  Report Type: Report from Study
  Country: MX (occurrence: MX)
  Receive Date: 20201006
  Receipt Date: 20201211
  Transmission Date: 20210114
  Serious: Yes (Other)
  Sender: FDA-Public Use
  Company Number: MX-BRISTOL-MYERS SQUIBB COMPANY-BMS-2020-081881

PATIENT
  Age: 55 Year
  Sex: Male

DRUGS (1)
  1. NIVOLUMAB [Suspect]
     Active Substance: NIVOLUMAB
     Indication: MALIGNANT MELANOMA
     Dosage: 240 MILLIGRAM, Q2WK
     Route: 042
     Dates: start: 20200921, end: 20200930

REACTIONS (9)
  - Dysphagia [Unknown]
  - Pyrexia [Unknown]
  - Pruritus [Unknown]
  - Brain injury [Recovering/Resolving]
  - Eye irritation [Unknown]
  - Dizziness [Unknown]
  - Chills [Unknown]
  - Pharyngeal oedema [Unknown]
  - Headache [Unknown]

NARRATIVE: CASE EVENT DATE: 20200930
